FAERS Safety Report 5898249-4 (Version None)
Quarter: 2008Q3

REPORT INFORMATION
  Report Type: 
  Country: None (occurrence: None)
  Receive Date: 20080925
  Receipt Date: 20071109
  Transmission Date: 20090109
  Serious: No
  Sender: FDA-Public Use
  Company Number: A0668108A

PATIENT
  Age: 58 Year
  Sex: Male

DRUGS (5)
  1. WELLBUTRIN XL [Suspect]
     Indication: DEPRESSION
     Dosage: 300MG PER DAY
     Route: 048
     Dates: start: 20070728
  2. PROZAC [Concomitant]
  3. LITHIUM [Concomitant]
  4. ORPHENADRINE CITRATE [Concomitant]
  5. METHYLPREDNISOLONE [Concomitant]

REACTIONS (4)
  - BACK INJURY [None]
  - DYSGEUSIA [None]
  - INSOMNIA [None]
  - NAUSEA [None]
